FAERS Safety Report 24941429 (Version 2)
Quarter: 2025Q1

REPORT INFORMATION
  Report Type: Spontaneous
  Country: FR (occurrence: FR)
  Receive Date: 20250207
  Receipt Date: 20250212
  Transmission Date: 20250408
  Serious: Yes (Death)
  Sender: KARYOPHARM THERAPEUTICS
  Company Number: FR-KARYOPHARM-2025KPT000125

PATIENT

DRUGS (2)
  1. SELINEXOR [Suspect]
     Active Substance: SELINEXOR
     Indication: Plasma cell myeloma
     Dosage: UNK, QD
     Route: 048
  2. ELRANATAMAB [Suspect]
     Active Substance: ELRANATAMAB
     Indication: Malignant neoplasm of unknown primary site
     Route: 065

REACTIONS (2)
  - Death [Fatal]
  - Off label use [Unknown]
